FAERS Safety Report 9660933 (Version 4)
Quarter: 2013Q4

REPORT INFORMATION
  Report Type: Spontaneous
  Country: JP (occurrence: JP)
  Receive Date: 20131031
  Receipt Date: 20131129
  Transmission Date: 20140711
  Serious: Yes (Hospitalization)
  Sender: FDA-Public Use
  Company Number: JP-JNJFOC-20130904165

PATIENT
  Age: 51 Year
  Sex: Male
  Weight: 71 kg

DRUGS (12)
  1. REMICADE [Suspect]
     Indication: COLITIS ULCERATIVE
     Dosage: 15TH INFUSION
     Route: 042
     Dates: start: 20130727
  2. REMICADE [Suspect]
     Indication: COLITIS ULCERATIVE
     Route: 042
     Dates: start: 20111121
  3. PENTASA [Suspect]
     Indication: COLITIS ULCERATIVE
     Route: 048
     Dates: end: 20130910
  4. TALION [Concomitant]
     Indication: PROPHYLAXIS
     Route: 048
     Dates: start: 20120310
  5. PROTECADIN [Concomitant]
     Indication: PROPHYLAXIS
     Dosage: 20 DF
     Route: 048
     Dates: start: 20120310
  6. VOLTAREN [Concomitant]
     Indication: ARTHRALGIA
     Dosage: 20 DF
     Route: 048
     Dates: start: 20130727
  7. MUCOSTA [Concomitant]
     Indication: ARTHRALGIA
     Dosage: 20 DF
     Route: 048
     Dates: start: 20130727
  8. GASLON [Concomitant]
     Indication: GASTROOESOPHAGEAL REFLUX DISEASE
     Route: 048
  9. LAC-B [Concomitant]
     Indication: BOWEL MOVEMENT IRREGULARITY
     Route: 048
  10. GASTROM [Concomitant]
     Indication: GASTRITIS
     Route: 048
  11. MIYA BM [Concomitant]
     Indication: BOWEL MOVEMENT IRREGULARITY
     Route: 048
  12. PHELLOBERIN [Concomitant]
     Indication: DIARRHOEA
     Route: 048

REACTIONS (2)
  - Eosinophilic pneumonia [Recovered/Resolved]
  - Iron deficiency anaemia [Not Recovered/Not Resolved]
